FAERS Safety Report 23366861 (Version 1)
Quarter: 2024Q1

REPORT INFORMATION
  Report Type: Spontaneous
  Country: GB (occurrence: None)
  Receive Date: 20240104
  Receipt Date: 20240104
  Transmission Date: 20240410
  Serious: Yes (Hospitalization)
  Sender: FDA-Public Use
  Company Number: 2024A002668

PATIENT
  Sex: Female

DRUGS (4)
  1. OMEPRAZOLE [Suspect]
     Active Substance: OMEPRAZOLE
  2. VITAMINS [Concomitant]
     Active Substance: VITAMINS
  3. FOLIC ACID [Concomitant]
     Active Substance: FOLIC ACID
  4. IRON [Concomitant]
     Active Substance: IRON

REACTIONS (3)
  - Oral blood blister [Unknown]
  - Contusion [Unknown]
  - Off label use [Unknown]
